FAERS Safety Report 7498373-9 (Version None)
Quarter: 2011Q2

REPORT INFORMATION
  Report Type: 
  Country: None (occurrence: None)
  Receive Date: 20110524
  Receipt Date: 20091120
  Transmission Date: 20111010
  Serious: Yes (Other)
  Sender: FDA-Public Use
  Company Number: US-BAYER-200940894NA

PATIENT
  Age: 54 Year
  Sex: Female
  Weight: 80 kg

DRUGS (24)
  1. PREMPRO [Concomitant]
     Dosage: 0.625 MG, QD
     Route: 048
  2. FENTANYL [Concomitant]
     Dosage: 5000 ?G, UNK
     Route: 042
  3. TRASYLOL [Suspect]
     Indication: CORONARY ARTERY BYPASS
  4. MORPHINE [Concomitant]
     Dosage: 4 MG, UNK
     Route: 042
  5. ATENOLOL [Concomitant]
     Dosage: 100 MG, QD
     Route: 048
  6. GENTAMICIN [Concomitant]
     Dosage: 1000 MG, UNK
     Route: 042
     Dates: start: 19990622
  7. BENAZEPRIL HYDROCHLORIDE [Concomitant]
     Dosage: 20 MG, QD, AT NIGHT
  8. SODIUM NITROPRUSSIDE [Concomitant]
     Dosage: 7.5 MG, UNK
     Route: 042
  9. PROTAMINE SULFATE [Concomitant]
     Route: 042
  10. ANCEF [Concomitant]
     Indication: SURGERY
     Dosage: 1 G, UNK
     Route: 042
     Dates: start: 19990622
  11. VALIUM [Concomitant]
     Dosage: 1 G, UNK
     Route: 042
  12. PHENYLEPHRINE HCL [Concomitant]
     Route: 042
  13. NITROGLYCERIN [Concomitant]
     Dosage: UNK UNK, PRN
     Route: 048
  14. LASIX [Concomitant]
     Dosage: 40 MG, BID
     Route: 048
  15. HEPARIN [Concomitant]
     Dosage: 5000 U, UNK
     Route: 042
  16. AMICAR [Concomitant]
  17. PAVULON [Concomitant]
     Dosage: 30 MG, UNK
     Route: 042
  18. SIMVASTATIN [Concomitant]
     Dosage: 20 MG, QD
     Route: 048
  19. VALIUM [Concomitant]
     Dosage: 15 MG, UNK
     Route: 042
  20. SCOPOLAMINE [Concomitant]
     Route: 042
  21. ALBUMIN (HUMAN) [Concomitant]
     Dosage: 20 ML, UNK
     Route: 042
  22. SOLU-MEDROL [Concomitant]
     Dosage: 250 MG, UNK
     Route: 042
  23. MANNITOL [Concomitant]
     Route: 042
  24. HESPAN IN EXCEL PLASTIC CONTAINER [Concomitant]
     Dosage: 500
     Route: 042

REACTIONS (11)
  - UNEVALUABLE EVENT [None]
  - MULTI-ORGAN FAILURE [None]
  - RENAL INJURY [None]
  - PAIN [None]
  - RENAL FAILURE [None]
  - INJURY [None]
  - ANXIETY [None]
  - DEPRESSION [None]
  - FEAR [None]
  - ANHEDONIA [None]
  - DISABILITY [None]
